FAERS Safety Report 7087124-8 (Version None)
Quarter: 2010Q4

REPORT INFORMATION
  Report Type: 
  Country: None (occurrence: None)
  Receive Date: 20101106
  Receipt Date: 20101028
  Transmission Date: 20110411
  Serious: No
  Sender: FDA-Public Use
  Company Number: US-WYE-H18440410

PATIENT
  Sex: Female
  Weight: 47.67 kg

DRUGS (3)
  1. PRISTIQ [Suspect]
     Indication: DEPRESSION
     Route: 048
     Dates: start: 20091201
  2. RITALIN [Suspect]
     Indication: FATIGUE
     Dosage: UNKNOWN
     Dates: start: 20100101, end: 20100101
  3. ALDACTONE [Concomitant]

REACTIONS (4)
  - FATIGUE [None]
  - HYPERSENSITIVITY [None]
  - MALAISE [None]
  - RASH [None]
